FAERS Safety Report 6223516-4 (Version None)
Quarter: 2009Q2

REPORT INFORMATION
  Report Type: 
  Country: None (occurrence: None)
  Receive Date: 20090610
  Receipt Date: 20090603
  Transmission Date: 20091009
  Serious: No
  Sender: FDA-Public Use
  Company Number: 090175

PATIENT
  Age: 86 Year
  Sex: Female
  Weight: 77.1115 kg

DRUGS (1)
  1. HALFLYTELY [Suspect]
     Indication: COLONOSCOPY
     Dosage: 10MG/2L/1X/PO
     Route: 048
     Dates: start: 20090531

REACTIONS (3)
  - CHEILITIS [None]
  - DYSPNOEA [None]
  - LIP SWELLING [None]
